FAERS Safety Report 10076743 (Version 2)
Quarter: 2014Q2

REPORT INFORMATION
  Report Type: Spontaneous
  Country: PT (occurrence: PT)
  Receive Date: 20140414
  Receipt Date: 20140523
  Transmission Date: 20141212
  Serious: Yes (Death, Life-Threatening, Hospitalization)
  Sender: FDA-Public Use
  Company Number: PT-B.I. PHARMACEUTICALS,INC./RIDGEFIELD-2014-BI-16905PO

PATIENT
  Age: 82 Year
  Sex: Male

DRUGS (12)
  1. PRADAXA [Suspect]
     Indication: ATRIAL FIBRILLATION
     Dosage: 220 MG
     Route: 048
     Dates: end: 20140408
  2. BROMAZEPAM [Concomitant]
     Route: 065
  3. VERAPAMIL [Concomitant]
     Route: 065
  4. IRBESARTAN [Concomitant]
     Route: 065
  5. DIGOXIN [Concomitant]
     Route: 065
  6. FINASTERIDE [Concomitant]
     Route: 065
  7. ALLOPURINOL [Concomitant]
     Route: 065
  8. ETORICOXIB [Concomitant]
     Route: 065
  9. ESOMEPRAZOL [Concomitant]
     Route: 065
  10. METFORMIN [Concomitant]
     Route: 065
  11. TRIMETAZIDINE [Concomitant]
     Route: 065
  12. SIMVASTATIN [Concomitant]
     Route: 065

REACTIONS (4)
  - Embolic stroke [Fatal]
  - Hemiparesis [Fatal]
  - Haemorrhagic stroke [Fatal]
  - Coma [Fatal]
